FAERS Safety Report 4805176-X (Version None)
Quarter: 2005Q4

REPORT INFORMATION
  Report Type: 
  Country: None (occurrence: None)
  Receive Date: 20051017
  Receipt Date: 20050919
  Transmission Date: 20060501
  Serious: Yes (Death)
  Sender: FDA-Public Use
  Company Number: CAR_0045_2005

PATIENT
  Age: 46 Year
  Sex: 0

DRUGS (3)
  1. FLUOXETINE [Suspect]
     Dosage: DF PO
     Route: 048
  2. ACETAMINOPHEN AND OXYCODONE HCL [Suspect]
     Dosage: DF   PO
     Route: 048
  3. ELETRIPTAN [Suspect]
     Dosage: DF  PO
     Route: 048

REACTIONS (2)
  - COMPLETED SUICIDE [None]
  - MULTIPLE DRUG OVERDOSE [None]
